FAERS Safety Report 5377769-5 (Version None)
Quarter: 2007Q3

REPORT INFORMATION
  Report Type: 
  Country: None (occurrence: None)
  Receive Date: 20070703
  Receipt Date: 20070625
  Transmission Date: 20080115
  Serious: Yes (Hospitalization)
  Sender: FDA-Public Use
  Company Number: DE-PFIZER INC-2007052198

PATIENT
  Weight: 106 kg

DRUGS (2)
  1. LYRICA [Suspect]
     Indication: INTERVERTEBRAL DISC PROTRUSION
     Route: 048
     Dates: start: 20070618, end: 20070621
  2. LYRICA [Suspect]
     Indication: SPINAL OSTEOARTHRITIS

REACTIONS (2)
  - ASTERIXIS [None]
  - DRUG ERUPTION [None]
